FAERS Safety Report 19134556 (Version 1)
Quarter: 2021Q2

REPORT INFORMATION
  Report Type: Spontaneous
  Country: US (occurrence: US)
  Receive Date: 20210414
  Receipt Date: 20210414
  Transmission Date: 20210717
  Serious: No
  Sender: FDA-Public Use
  Company Number: None

PATIENT
  Age: 42 Year
  Sex: Female

DRUGS (1)
  1. IMATINIB 400MG [Suspect]
     Active Substance: IMATINIB
     Indication: NEOPLASM MALIGNANT
     Route: 048
     Dates: start: 20210218, end: 20210329

REACTIONS (2)
  - Nausea [None]
  - Abdominal pain upper [None]

NARRATIVE: CASE EVENT DATE: 20210329
